FAERS Safety Report 11506071 (Version 1)
Quarter: 2015Q3

REPORT INFORMATION
  Report Type: Spontaneous
  Country: US (occurrence: US)
  Receive Date: 20150915
  Receipt Date: 20150915
  Transmission Date: 20151125
  Serious: Yes (Other)
  Sender: FDA-Public Use
  Company Number: US-ROCHE-773988

PATIENT
  Sex: Female
  Weight: 103 kg

DRUGS (2)
  1. RIBAVIRIN. [Suspect]
     Active Substance: RIBAVIRIN
     Indication: HEPATITIS C
     Dosage: DIVIDED DOSES
     Route: 065
  2. PEGASYS [Suspect]
     Active Substance: PEGINTERFERON ALFA-2A
     Indication: HEPATITIS C
     Dosage: FORM: PFS
     Route: 065

REACTIONS (10)
  - Gingival pain [Unknown]
  - Vision blurred [Unknown]
  - Red blood cell count decreased [Not Recovered/Not Resolved]
  - White blood cell count decreased [Recovering/Resolving]
  - Fatigue [Unknown]
  - Alopecia [Unknown]
  - Oral pain [Unknown]
  - Weight decreased [Unknown]
  - Decreased appetite [Unknown]
  - Memory impairment [Unknown]
